FAERS Safety Report 24914910 (Version 1)
Quarter: 2025Q1

REPORT INFORMATION
  Report Type: Report from Study
  Country: AR (occurrence: AR)
  Receive Date: 20250203
  Receipt Date: 20250203
  Transmission Date: 20250408
  Serious: Yes (Hospitalization)
  Sender: ABBVIE
  Company Number: AR-ABBVIE-6108215

PATIENT
  Age: 68 Year
  Sex: Female

DRUGS (1)
  1. RINVOQ [Suspect]
     Active Substance: UPADACITINIB
     Indication: Crohn^s disease
     Dosage: SHE DIDN^T TAKE IT FOR 2 DAYS BECAUSE OF THE MENTIONED EVENT
     Route: 048
     Dates: start: 20231007

REACTIONS (3)
  - Blood potassium decreased [Recovered/Resolved]
  - Frequent bowel movements [Recovered/Resolved]
  - Crohn^s disease [Recovered/Resolved]

NARRATIVE: CASE EVENT DATE: 20250116
